FAERS Safety Report 5278038-4 (Version None)
Quarter: 2007Q1

REPORT INFORMATION
  Report Type: 
  Country: None (occurrence: None)
  Receive Date: 20070327
  Receipt Date: 20070321
  Transmission Date: 20070707
  Serious: Yes (Other)
  Sender: FDA-Public Use
  Company Number: US-ELI_LILLY_AND_COMPANY-US200608006490

PATIENT
  Sex: Male
  Weight: 56.689 kg

DRUGS (10)
  1. HUMALOG [Suspect]
     Indication: DIABETES MELLITUS
     Dosage: UNK UNK, AS NEEDED
     Dates: start: 20030101
  2. ZETIA [Concomitant]
     Indication: HYPERLIPIDAEMIA
  3. ASPIRIN [Concomitant]
     Indication: PROPHYLAXIS
  4. LASIX [Concomitant]
     Dosage: 40 MG, OTHER
  5. LANTUS [Concomitant]
     Indication: DIABETES MELLITUS
     Dosage: 20 U, DAILY (1/D)
  6. NITROGLYCERINUM [Concomitant]
     Indication: CARDIAC DISORDER
     Dosage: UNK UNK, AS NEEDED
  7. NASONEX [Concomitant]
     Indication: MULTIPLE ALLERGIES
     Dosage: UNK UNK, DAILY (1/D)
  8. CYMBALTA [Suspect]
     Dosage: UNK UNK, EACH EVENING
     Dates: end: 20060401
  9. CYMBALTA [Suspect]
     Dosage: 40 MG, EACH EVENING
     Dates: start: 20060501, end: 20060101
  10. CYMBALTA [Suspect]
     Dosage: 40 MG, UNK
     Dates: start: 20060701

REACTIONS (8)
  - ASTHMA [None]
  - ATRIAL FIBRILLATION [None]
  - BLISTER [None]
  - CHRONIC OBSTRUCTIVE PULMONARY DISEASE [None]
  - HYPERTENSION [None]
  - INTERNATIONAL NORMALISED RATIO INCREASED [None]
  - MULTIPLE ALLERGIES [None]
  - MYOCARDIAL INFARCTION [None]
